FAERS Safety Report 19746730 (Version 2)
Quarter: 2021Q3

REPORT INFORMATION
  Report Type: Spontaneous
  Country: US (occurrence: US)
  Receive Date: 20210825
  Receipt Date: 20210825
  Transmission Date: 20211014
  Serious: No
  Sender: FDA-Public Use
  Company Number: US-GALDERMA-US2021013959

PATIENT

DRUGS (2)
  1. DIFFERIN OIL CONTROL MOISTURIZER SPF 30 [Suspect]
     Active Substance: AVOBENZONE\OCTISALATE\OCTOCRYLENE
     Indication: ACNE
     Dosage: 1 DOSAGE FORM, QD
     Route: 061
     Dates: start: 20210618, end: 20210709
  2. DIFFERIN GEL [Suspect]
     Active Substance: ADAPALENE
     Indication: ACNE
     Dosage: 1 DOSAGE FORM, QD
     Route: 061
     Dates: start: 20210618, end: 20210709

REACTIONS (7)
  - Acne [Unknown]
  - Drug ineffective [Unknown]
  - Skin burning sensation [Not Recovered/Not Resolved]
  - Product use issue [Recovered/Resolved]
  - Pruritus [Not Recovered/Not Resolved]
  - Eye pruritus [Unknown]
  - Skin exfoliation [Not Recovered/Not Resolved]

NARRATIVE: CASE EVENT DATE: 20210618
